FAERS Safety Report 25414050 (Version 1)
Quarter: 2025Q2

REPORT INFORMATION
  Report Type: Spontaneous
  Country: PL (occurrence: PL)
  Receive Date: 20250609
  Receipt Date: 20250609
  Transmission Date: 20250716
  Serious: Yes (Other)
  Sender: NOVARTIS
  Company Number: PL-002147023-NVSC2025PL091407

PATIENT
  Sex: Male

DRUGS (49)
  1. ELTROMBOPAG [Suspect]
     Active Substance: ELTROMBOPAG
     Indication: Product used for unknown indication
     Route: 065
     Dates: start: 202206
  2. ELTROMBOPAG [Suspect]
     Active Substance: ELTROMBOPAG
     Route: 065
     Dates: start: 202207
  3. ELTROMBOPAG [Suspect]
     Active Substance: ELTROMBOPAG
     Route: 065
     Dates: start: 202207
  4. ELTROMBOPAG [Suspect]
     Active Substance: ELTROMBOPAG
     Route: 065
     Dates: start: 202208
  5. ELTROMBOPAG [Suspect]
     Active Substance: ELTROMBOPAG
     Route: 065
     Dates: start: 202209
  6. ELTROMBOPAG [Suspect]
     Active Substance: ELTROMBOPAG
     Route: 065
     Dates: start: 202209
  7. ELTROMBOPAG [Suspect]
     Active Substance: ELTROMBOPAG
     Route: 065
     Dates: start: 202210
  8. ELTROMBOPAG [Suspect]
     Active Substance: ELTROMBOPAG
     Route: 065
     Dates: start: 202211
  9. ELTROMBOPAG [Suspect]
     Active Substance: ELTROMBOPAG
     Route: 065
     Dates: start: 202301
  10. ELTROMBOPAG [Suspect]
     Active Substance: ELTROMBOPAG
     Route: 065
     Dates: start: 202302
  11. ELTROMBOPAG [Suspect]
     Active Substance: ELTROMBOPAG
     Route: 065
     Dates: start: 202305
  12. PREDNISONE [Concomitant]
     Active Substance: PREDNISONE
     Indication: Product used for unknown indication
     Route: 065
  13. PREDNISONE [Concomitant]
     Active Substance: PREDNISONE
     Route: 065
     Dates: start: 202107
  14. PREDNISONE [Concomitant]
     Active Substance: PREDNISONE
     Route: 065
     Dates: start: 202107
  15. PREDNISONE [Concomitant]
     Active Substance: PREDNISONE
     Route: 065
     Dates: start: 202108
  16. PREDNISONE [Concomitant]
     Active Substance: PREDNISONE
     Route: 065
     Dates: start: 202109
  17. PREDNISONE [Concomitant]
     Active Substance: PREDNISONE
     Route: 065
     Dates: start: 202112
  18. PREDNISONE [Concomitant]
     Active Substance: PREDNISONE
     Route: 065
     Dates: start: 202202
  19. PREDNISONE [Concomitant]
     Active Substance: PREDNISONE
     Route: 065
     Dates: start: 202203
  20. PREDNISONE [Concomitant]
     Active Substance: PREDNISONE
     Route: 065
     Dates: start: 202205
  21. PREDNISONE [Concomitant]
     Active Substance: PREDNISONE
     Route: 065
     Dates: start: 202206
  22. PREDNISONE [Concomitant]
     Active Substance: PREDNISONE
     Route: 065
     Dates: start: 202207
  23. PREDNISONE [Concomitant]
     Active Substance: PREDNISONE
     Route: 065
     Dates: start: 202207
  24. PREDNISONE [Concomitant]
     Active Substance: PREDNISONE
     Route: 065
     Dates: start: 202208
  25. PREDNISONE [Concomitant]
     Active Substance: PREDNISONE
     Route: 065
     Dates: start: 202209
  26. PREDNISONE [Concomitant]
     Active Substance: PREDNISONE
     Route: 065
     Dates: start: 202301
  27. DEXAMETHASONE [Concomitant]
     Active Substance: DEXAMETHASONE
     Indication: Product used for unknown indication
     Route: 065
     Dates: start: 202305
  28. AZATHIOPRINE [Concomitant]
     Active Substance: AZATHIOPRINE
     Indication: Product used for unknown indication
     Route: 065
     Dates: start: 202109
  29. AZATHIOPRINE [Concomitant]
     Active Substance: AZATHIOPRINE
     Route: 065
     Dates: start: 202112
  30. AZATHIOPRINE [Concomitant]
     Active Substance: AZATHIOPRINE
     Route: 065
     Dates: start: 202202
  31. AZATHIOPRINE [Concomitant]
     Active Substance: AZATHIOPRINE
     Route: 065
     Dates: start: 202203
  32. AZATHIOPRINE [Concomitant]
     Active Substance: AZATHIOPRINE
     Route: 065
     Dates: start: 202205
  33. AZATHIOPRINE [Concomitant]
     Active Substance: AZATHIOPRINE
     Route: 065
     Dates: start: 202206
  34. AZATHIOPRINE [Concomitant]
     Active Substance: AZATHIOPRINE
     Route: 065
     Dates: start: 202207
  35. AZATHIOPRINE [Concomitant]
     Active Substance: AZATHIOPRINE
     Route: 065
     Dates: start: 202208
  36. AZATHIOPRINE [Concomitant]
     Active Substance: AZATHIOPRINE
     Route: 065
     Dates: start: 202209
  37. AZATHIOPRINE [Concomitant]
     Active Substance: AZATHIOPRINE
     Route: 065
     Dates: start: 202210
  38. AZATHIOPRINE [Concomitant]
     Active Substance: AZATHIOPRINE
     Route: 065
     Dates: start: 202211
  39. AZATHIOPRINE [Concomitant]
     Active Substance: AZATHIOPRINE
     Route: 065
     Dates: start: 202301
  40. AZATHIOPRINE [Concomitant]
     Active Substance: AZATHIOPRINE
     Route: 065
     Dates: start: 202302
  41. AZATHIOPRINE [Concomitant]
     Active Substance: AZATHIOPRINE
     Route: 065
     Dates: start: 202305
  42. CYCLOSPORINE [Concomitant]
     Active Substance: CYCLOSPORINE
     Indication: Product used for unknown indication
     Route: 065
     Dates: start: 202112
  43. CYCLOSPORINE [Concomitant]
     Active Substance: CYCLOSPORINE
     Route: 065
     Dates: start: 202202
  44. CYCLOSPORINE [Concomitant]
     Active Substance: CYCLOSPORINE
     Route: 065
     Dates: start: 202203
  45. CYCLOSPORINE [Concomitant]
     Active Substance: CYCLOSPORINE
     Route: 065
     Dates: start: 202205
  46. CYCLOSPORINE [Concomitant]
     Active Substance: CYCLOSPORINE
     Route: 065
     Dates: start: 202206
  47. CYCLOSPORINE [Concomitant]
     Active Substance: CYCLOSPORINE
     Route: 065
     Dates: start: 202207
  48. CYCLOSPORINE [Concomitant]
     Active Substance: CYCLOSPORINE
     Route: 065
     Dates: start: 202207
  49. CYCLOSPORINE [Concomitant]
     Active Substance: CYCLOSPORINE
     Route: 065
     Dates: start: 202208

REACTIONS (3)
  - Cerebral haematoma [Unknown]
  - Head injury [Unknown]
  - Petechiae [Unknown]

NARRATIVE: CASE EVENT DATE: 20230101
